FAERS Safety Report 6210961-6 (Version None)
Quarter: 2009Q2

REPORT INFORMATION
  Report Type: 
  Country: None (occurrence: None)
  Receive Date: 20090602
  Receipt Date: 20070509
  Transmission Date: 20091009
  Serious: Yes (Hospitalization, Other)
  Sender: FDA-Public Use
  Company Number: US-ASTRAZENECA-2006UW11588

PATIENT
  Age: 12561 Day
  Sex: Female
  Weight: 135.6 kg

DRUGS (15)
  1. SEROQUEL [Suspect]
     Dosage: 100-900 MG (FLUCTUATING)
     Route: 048
     Dates: start: 19991123
  2. ZYPREXA [Suspect]
     Dosage: 5-10 MG
     Route: 048
  3. ZOLOFT [Concomitant]
     Route: 048
  4. LOXITANE [Concomitant]
     Dosage: 10-100 MG
     Route: 048
  5. GLUCOPHAGE [Concomitant]
     Dosage: 500-2500 MG
     Route: 048
  6. BUSPAR [Concomitant]
     Route: 048
  7. NEURONTIN [Concomitant]
     Route: 048
  8. LIPITOR [Concomitant]
     Dosage: 20-40 MG
     Route: 048
  9. ZESTRIL [Concomitant]
     Dosage: 05-20 MG
     Route: 048
  10. TRAZODONE HCL [Concomitant]
     Route: 048
  11. ACTOS [Concomitant]
     Route: 048
  12. LOTENSIN [Concomitant]
     Route: 048
  13. DIOVAN [Concomitant]
     Dosage: 80-160 MG
     Route: 048
  14. HYDROCHLOROTHIAZIDE [Concomitant]
     Route: 048
  15. ASPIRIN [Concomitant]
     Route: 048

REACTIONS (5)
  - CEREBROVASCULAR ACCIDENT [None]
  - DIABETES MELLITUS [None]
  - DIABETIC NEUROPATHY [None]
  - DIABETIC RETINOPATHY [None]
  - HYPERTENSION [None]
